FAERS Safety Report 10884809 (Version 1)
Quarter: 2015Q1

REPORT INFORMATION
  Report Type: Spontaneous
  Country: US (occurrence: None)
  Receive Date: 20150227
  Receipt Date: 20150227
  Transmission Date: 20150721
  Serious: Yes (Other)
  Sender: FDA-Public Use
  Company Number: None

PATIENT
  Age: 52 Year
  Sex: Female
  Weight: 93.44 kg

DRUGS (1)
  1. TAMIFLU [Suspect]
     Active Substance: OSELTAMIVIR PHOSPHATE
     Indication: INFLUENZA
     Route: 048
     Dates: start: 20150213, end: 20150217

REACTIONS (5)
  - Blindness transient [None]
  - Cognitive disorder [None]
  - Visual impairment [None]
  - Hallucination, visual [None]
  - Abnormal behaviour [None]

NARRATIVE: CASE EVENT DATE: 20150217
